FAERS Safety Report 8117662-8 (Version None)
Quarter: 2012Q1

REPORT INFORMATION
  Report Type: 
  Country: None (occurrence: None)
  Receive Date: 20120203
  Receipt Date: 20120203
  Transmission Date: 20120608
  Serious: Yes (Other)
  Sender: FDA-Public Use
  Company Number: None

PATIENT
  Sex: Female

DRUGS (2)
  1. PRAZOSIN HCL [Suspect]
     Indication: NIGHTMARE
     Dosage: 5MG QD PO
     Route: 048
     Dates: start: 20111207
  2. CLOZAPINE [Suspect]
     Indication: PSYCHOTIC DISORDER
     Dosage: 100MG TID PO
     Route: 048
     Dates: start: 20111207

REACTIONS (2)
  - SEDATION [None]
  - ENURESIS [None]
